FAERS Safety Report 7999633-5 (Version None)
Quarter: 2011Q4

REPORT INFORMATION
  Report Type: 
  Country: None (occurrence: None)
  Receive Date: 20111221
  Receipt Date: 20111216
  Transmission Date: 20120403
  Serious: Yes (Death)
  Sender: FDA-Public Use
  Company Number: US-ASTRAZENECA-2011SE76898

PATIENT
  Age: 13 Year
  Sex: Female

DRUGS (8)
  1. QUETIAPINE [Suspect]
     Route: 048
  2. TRAZODONE HCL [Suspect]
     Route: 048
  3. FLUOXETINE [Suspect]
     Route: 048
  4. TEMAZEPAM [Suspect]
     Route: 048
  5. OXCARBAZEPINE [Suspect]
     Route: 048
  6. ZOLPIDEM [Suspect]
     Route: 048
  7. LORAZEPAM [Suspect]
     Route: 048
  8. OLANZAPINE [Suspect]
     Route: 048

REACTIONS (2)
  - CARDIO-RESPIRATORY ARREST [None]
  - TOXICITY TO VARIOUS AGENTS [None]
